FAERS Safety Report 9165674 (Version 1)
Quarter: 2013Q1

REPORT INFORMATION
  Report Type: Spontaneous
  Country: UA (occurrence: None)
  Receive Date: 20130227
  Receipt Date: 20130227
  Transmission Date: 20140127
  Serious: Yes (Hospitalization)
  Sender: FDA-Public Use
  Company Number: GPV/UKR/13/0028014

PATIENT
  Age: 73 Year
  Sex: Male

DRUGS (1)
  1. ATOCOR [Suspect]
     Indication: HYPERCHOLESTEROLAEMIA
     Route: 048
     Dates: start: 20100216

REACTIONS (2)
  - Flushing [None]
  - Rash [None]
